FAERS Safety Report 16987894 (Version 1)
Quarter: 2019Q4

REPORT INFORMATION
  Report Type: Spontaneous
  Country: US (occurrence: US)
  Receive Date: 20191104
  Receipt Date: 20191104
  Transmission Date: 20200122
  Serious: No
  Sender: FDA-Public Use
  Company Number: US-CIPLA LTD.-2019US01111

PATIENT

DRUGS (3)
  1. LOSARTAN/HCTZ [Concomitant]
     Active Substance: HYDROCHLOROTHIAZIDE\LOSARTAN
     Indication: BLOOD PRESSURE ABNORMAL
     Dosage: UNK, 2-3 YEARS
     Route: 065
  2. GABAPENTIN. [Suspect]
     Active Substance: GABAPENTIN
     Indication: NEUROPATHY PERIPHERAL
     Dosage: 3 DOSAGE FORM, A DAY
     Route: 048
     Dates: start: 20190101
  3. GABAPENTIN. [Suspect]
     Active Substance: GABAPENTIN
     Dosage: 2 DOSAGE FORM, A DAY
     Route: 048

REACTIONS (1)
  - Tinnitus [Not Recovered/Not Resolved]
